FAERS Safety Report 18271242 (Version 1)
Quarter: 2020Q3

REPORT INFORMATION
  Report Type: Other
  Country: JP (occurrence: JP)
  Receive Date: 20200915
  Receipt Date: 20200915
  Transmission Date: 20201103
  Serious: Yes (Other)
  Sender: FDA-Public Use
  Company Number: JP-MLV PHARMA LLC-000007

PATIENT
  Age: 69 Year
  Sex: Female

DRUGS (3)
  1. LEVOFLOXACIN. [Concomitant]
     Active Substance: LEVOFLOXACIN
     Indication: PRODUCT USED FOR UNKNOWN INDICATION
     Dosage: 1.5% TOPICAL OPHTHALMIC SOLUTION, ADMINISTERED FOUR TIMES DAILY FOR 3 DAYS POST?INJECTION.
  2. LIDOCAINE. [Concomitant]
     Active Substance: LIDOCAINE
     Indication: ANAESTHESIA
     Dosage: EYE WAS ANAESTHETIZED WITH 4% TOPICAL LIDOCAINE.
     Route: 061
  3. TRIAMCINOLONE ACETONIDE. [Suspect]
     Active Substance: TRIAMCINOLONE ACETONIDE
     Indication: MACULAR OEDEMA
     Dosage: 20 MG, INJECTED INTO THE POSTERIOR SUBTENON?SPACE.
     Route: 031

REACTIONS (1)
  - Orbital infection [Recovered/Resolved]
